FAERS Safety Report 10120946 (Version 3)
Quarter: 2014Q3

REPORT INFORMATION
  Report Type: Spontaneous
  Country: JP (occurrence: JP)
  Receive Date: 20140425
  Receipt Date: 20140819
  Transmission Date: 20150326
  Serious: Yes (Other)
  Sender: FDA-Public Use
  Company Number: JP-NAPPMUNDI-GBR-2014-0018022

PATIENT
  Age: 67 Year
  Sex: Male

DRUGS (1)
  1. OXYCODONE HCL PR TABLET [Suspect]
     Active Substance: OXYCODONE HYDROCHLORIDE
     Indication: PRODUCT USED FOR UNKNOWN INDICATION
     Dosage: UNK
     Route: 048
     Dates: start: 20140310

REACTIONS (1)
  - Delirium [Not Recovered/Not Resolved]

NARRATIVE: CASE EVENT DATE: 20140319
